FAERS Safety Report 20711832 (Version 1)
Quarter: 2022Q2

REPORT INFORMATION
  Report Type: Spontaneous
  Country: US (occurrence: US)
  Receive Date: 20220414
  Receipt Date: 20220414
  Transmission Date: 20220721
  Serious: No
  Sender: FDA-Public Use
  Company Number: US-PFIZER INC-202101039177

PATIENT
  Age: 55 Year
  Sex: Male
  Weight: 79.365 kg

DRUGS (3)
  1. CHANTIX [Suspect]
     Active Substance: VARENICLINE TARTRATE
     Indication: Smoking cessation therapy
     Dosage: UNK
  2. CHANTIX [Suspect]
     Active Substance: VARENICLINE TARTRATE
     Dosage: 1 MG, 2X/DAY
     Route: 048
  3. CHANTIX [Suspect]
     Active Substance: VARENICLINE TARTRATE
     Dosage: UNK

REACTIONS (7)
  - Recalled product administered [Unknown]
  - Dyspnoea [Not Recovered/Not Resolved]
  - Nervous system disorder [Unknown]
  - Agitation [Unknown]
  - Illness [Unknown]
  - Hypersensitivity [Unknown]
  - Pain [Unknown]
